FAERS Safety Report 6543958-7 (Version None)
Quarter: 2010Q1

REPORT INFORMATION
  Report Type: 
  Country: None (occurrence: None)
  Receive Date: 20100120
  Receipt Date: 20100114
  Transmission Date: 20100710
  Serious: Yes (Hospitalization)
  Sender: FDA-Public Use
  Company Number: US-PFIZER INC-2010005089

PATIENT
  Sex: Male
  Weight: 96.145 kg

DRUGS (11)
  1. BLINDED *PLACEBO [Suspect]
     Dosage: UNK
     Dates: start: 20091002, end: 20091209
  2. SILDENAFIL CITRATE [Suspect]
     Dosage: UNK
     Dates: start: 20091002, end: 20091209
  3. BLINDED *PLACEBO [Suspect]
     Dosage: UNK
     Dates: start: 20091226, end: 20091228
  4. SILDENAFIL CITRATE [Suspect]
     Dosage: UNK
     Dates: start: 20091226, end: 20091228
  5. PRAVASTATIN [Concomitant]
     Dosage: 20 MG, 1X/DAY
     Route: 048
  6. ZOLPIDEM [Concomitant]
     Dosage: 10 MG, 1X/DAY
  7. GLIPIZIDE [Concomitant]
     Dosage: 5 MG, 2X/DAY
     Route: 048
  8. ACETYLSALICYLIC ACID [Concomitant]
     Dosage: 81 MG, 1X/DAY
     Route: 048
  9. HYDROCHLOROTHIAZIDE [Concomitant]
     Dosage: 12.5 MG, 1X/DAY
     Route: 048
  10. LISINOPRIL [Concomitant]
     Dosage: 10 MG, 1X/DAY
     Route: 048
  11. TRICOR [Concomitant]
     Dosage: 145 MG, 1X/DAY
     Route: 048

REACTIONS (1)
  - SYNCOPE [None]
